FAERS Safety Report 25817918 (Version 1)
Quarter: 2025Q3

REPORT INFORMATION
  Report Type: Spontaneous
  Country: US (occurrence: US)
  Receive Date: 20250918
  Receipt Date: 20250918
  Transmission Date: 20251021
  Serious: No
  Sender: CALLIDITAS THERAPEUTICS AB
  Company Number: US-Calliditas-2025CAL02611

PATIENT
  Age: 39 Year
  Sex: Male

DRUGS (11)
  1. TARPEYO [Suspect]
     Active Substance: BUDESONIDE
     Indication: IgA nephropathy
     Route: 048
     Dates: start: 20250815
  2. ALLOPURINOL [Concomitant]
     Active Substance: ALLOPURINOL
  3. VITAMINS [Concomitant]
     Active Substance: VITAMINS
  4. SULFACETAMIDE SODIUM [Concomitant]
     Active Substance: SULFACETAMIDE SODIUM
  5. SULFUR [Concomitant]
     Active Substance: SULFUR
  6. VALTREX [Concomitant]
     Active Substance: VALACYCLOVIR HYDROCHLORIDE
  7. COLCHICINE [Concomitant]
     Active Substance: COLCHICINE
  8. PROBIOTICS NOS [Concomitant]
     Active Substance: PROBIOTICS NOS
  9. PSILOCYBIN [Concomitant]
     Active Substance: PSILOCYBIN
  10. FISH OIL [Concomitant]
     Active Substance: FISH OIL
  11. TRETINOIN [Concomitant]
     Active Substance: TRETINOIN

REACTIONS (2)
  - Product residue present [Unknown]
  - Faeces soft [Unknown]

NARRATIVE: CASE EVENT DATE: 20250914
